FAERS Safety Report 17940909 (Version 3)
Quarter: 2020Q3

REPORT INFORMATION
  Report Type: Report from Study
  Country: BE (occurrence: BE)
  Receive Date: 20200624
  Receipt Date: 20200722
  Transmission Date: 20201103
  Serious: Yes (Hospitalization)
  Sender: FDA-Public Use
  Company Number: BE-PFIZER INC-2020192229

PATIENT
  Age: 70 Year
  Sex: Male
  Weight: 85 kg

DRUGS (6)
  1. CISPLATIN. [Suspect]
     Active Substance: CISPLATIN
     Indication: BLADDER TRANSITIONAL CELL CARCINOMA
     Dosage: UNK, CYCLIC (ONCE EVERY 2 WEEKS)
     Route: 042
     Dates: start: 20191216
  2. CISPLATIN. [Suspect]
     Active Substance: CISPLATIN
     Dosage: 139 MG, CYCLIC (ONCE EVERY 2 WEEKS
     Route: 042
     Dates: start: 20200303
  3. GEMCITABINE HYDROCHLORIDE. [Suspect]
     Active Substance: GEMCITABINE HYDROCHLORIDE
     Dosage: 2015 MG, D1 D8, Q3W
     Route: 042
     Dates: start: 20200225
  4. GEMCITABINE HYDROCHLORIDE. [Suspect]
     Active Substance: GEMCITABINE HYDROCHLORIDE
     Indication: BLADDER TRANSITIONAL CELL CARCINOMA
     Dosage: D1 D8, Q3W
     Route: 042
     Dates: start: 20190216
  5. AVELUMAB [Suspect]
     Active Substance: AVELUMAB
     Indication: BLADDER TRANSITIONAL CELL CARCINOMA
     Dosage: UNK, CYCLIC (ONCE EVERY 2 WEEKS))
     Route: 042
     Dates: start: 20191216
  6. AVELUMAB [Suspect]
     Active Substance: AVELUMAB
     Dosage: 800 MG, CYCLIC (ONCE EVERY 2 WEEKS))
     Route: 042
     Dates: start: 20200303

REACTIONS (2)
  - Hyperkalaemia [Recovered/Resolved]
  - Pyelonephritis [Recovered/Resolved]

NARRATIVE: CASE EVENT DATE: 20200428
